FAERS Safety Report 11523719 (Version 1)
Quarter: 2015Q3

REPORT INFORMATION
  Report Type: Spontaneous
  Country: US (occurrence: US)
  Receive Date: 20150903
  Receipt Date: 20150903
  Transmission Date: 20151125
  Serious: No
  Sender: FDA-Public Use
  Company Number: US-ELI_LILLY_AND_COMPANY-US201211003597

PATIENT
  Age: 64 Year
  Sex: Female

DRUGS (6)
  1. CYMBALTA [Suspect]
     Active Substance: DULOXETINE HYDROCHLORIDE
     Dosage: 60 MG, QD
  2. HYDROCODONE [Concomitant]
     Active Substance: HYDROCODONE
  3. CYMBALTA [Suspect]
     Active Substance: DULOXETINE HYDROCHLORIDE
     Indication: DEPRESSION
     Dosage: 30 MG, QD
     Dates: start: 201209
  4. TYLENOL [Concomitant]
     Active Substance: ACETAMINOPHEN
  5. XANAX [Concomitant]
     Active Substance: ALPRAZOLAM
     Dosage: 0.05 MG, UNK
  6. CYMBALTA [Suspect]
     Active Substance: DULOXETINE HYDROCHLORIDE
     Dosage: 60 MG, QD

REACTIONS (7)
  - Tinnitus [Recovered/Resolved]
  - Disturbance in attention [Recovered/Resolved]
  - Paraesthesia [Recovered/Resolved]
  - Weight increased [Unknown]
  - Drug dose omission [Recovered/Resolved]
  - Vision blurred [Recovered/Resolved]
  - Feeling abnormal [Recovered/Resolved]

NARRATIVE: CASE EVENT DATE: 201301
